FAERS Safety Report 17052150 (Version 5)
Quarter: 2021Q3

REPORT INFORMATION
  Report Type: Spontaneous
  Country: CA (occurrence: CA)
  Receive Date: 20191120
  Receipt Date: 20210723
  Transmission Date: 20211014
  Serious: Yes (Hospitalization, Other)
  Sender: FDA-Public Use
  Company Number: CA-DRREDDYS-USA/CAN/19/0116088

PATIENT
  Age: 52 Year
  Sex: Female

DRUGS (11)
  1. BUDESONIDE. [Suspect]
     Active Substance: BUDESONIDE
     Route: 045
  2. CLARITIN [Concomitant]
     Active Substance: LORATADINE
     Indication: MENOPAUSE
  3. LORATADINE. [Suspect]
     Active Substance: LORATADINE
     Indication: PRODUCT USED FOR UNKNOWN INDICATION
     Route: 048
  4. GLICLAZIDE [Concomitant]
     Active Substance: GLICLAZIDE
     Indication: PRODUCT USED FOR UNKNOWN INDICATION
     Route: 048
  5. PROGESTERONE CAPSULES [Suspect]
     Active Substance: PROGESTERONE
     Indication: MENOPAUSE
     Route: 065
  6. ESTRADIOL. [Suspect]
     Active Substance: ESTRADIOL
     Indication: PRODUCT USED FOR UNKNOWN INDICATION
  7. PRASTERONE [Suspect]
     Active Substance: PRASTERONE
     Indication: PRODUCT USED FOR UNKNOWN INDICATION
     Route: 067
  8. THYROID HORMONES [Suspect]
     Active Substance: UNSPECIFIED INGREDIENT
     Indication: PRODUCT USED FOR UNKNOWN INDICATION
  9. DEHYDROEPIANDROSTERONE [Suspect]
     Active Substance: PRASTERONE
     Indication: PRODUCT USED FOR UNKNOWN INDICATION
     Route: 067
  10. BUDESONIDE. [Suspect]
     Active Substance: BUDESONIDE
     Indication: PRODUCT USED FOR UNKNOWN INDICATION
     Route: 045
  11. BUDESONIDE. [Concomitant]
     Active Substance: BUDESONIDE
     Indication: PRODUCT USED FOR UNKNOWN INDICATION

REACTIONS (11)
  - Headache [Unknown]
  - Cellulitis [Unknown]
  - Head discomfort [Unknown]
  - Photosensitivity reaction [Unknown]
  - Periorbital oedema [Unknown]
  - Feeling hot [Unknown]
  - Swelling face [Unknown]
  - Rash [Unknown]
  - Product use in unapproved indication [Unknown]
  - Tinnitus [Unknown]
  - Butterfly rash [Unknown]
